FAERS Safety Report 5542993-5 (Version None)
Quarter: 2007Q4

REPORT INFORMATION
  Report Type: 
  Country: None (occurrence: None)
  Receive Date: 20071123
  Receipt Date: 20070725
  Transmission Date: 20080405
  Serious: Yes (Other)
  Sender: FDA-Public Use
  Company Number: US-JNJFOC-20070401056

PATIENT
  Age: 63 Year
  Sex: Female
  Weight: 76.6579 kg

DRUGS (9)
  1. LEVAQUIN [Suspect]
     Indication: SINUSITIS
     Dosage: 750 MG, 1 IN 1 DAY, ORAL
     Route: 048
     Dates: start: 20061102, end: 20061106
  2. TOPROL-XL [Concomitant]
  3. FUROSEMIDE [Concomitant]
  4. GLIPIZIDE ER (GLIPIZIDE) TABLET [Concomitant]
  5. VYTORIN (CHOLESTEROL- AND TRIGLYCERINE REDUCERS) TABLET [Concomitant]
  6. ENALAPRIL MALEATE [Concomitant]
  7. AVANDIA (ROSIGLITAZONE MALEATE) TABLET [Concomitant]
  8. KLOR-CON (POTASSIUM CHLORIDE) TABLET [Concomitant]
  9. ZYRTEC [Concomitant]

REACTIONS (2)
  - MUSCULOSKELETAL PAIN [None]
  - ROTATOR CUFF SYNDROME [None]
